FAERS Safety Report 8264560-5 (Version None)
Quarter: 2012Q2

REPORT INFORMATION
  Report Type: 
  Country: None (occurrence: None)
  Receive Date: 20120406
  Receipt Date: 20120329
  Transmission Date: 20120825
  Serious: Yes (Hospitalization, Other)
  Sender: FDA-Public Use
  Company Number: US-AMGEN-USASP2012020316

PATIENT
  Age: 55 Year
  Sex: Female

DRUGS (1)
  1. ENBREL [Suspect]
     Indication: PSORIATIC ARTHROPATHY
     Dosage: 50 MG, QWK
     Dates: start: 20060324, end: 20120318

REACTIONS (6)
  - BIOPSY LUNG ABNORMAL [None]
  - LUNG NEOPLASM [None]
  - ARTHRITIS [None]
  - SCIATICA [None]
  - LOWER RESPIRATORY TRACT INFLAMMATION [None]
  - SPINAL LAMINECTOMY [None]
